FAERS Safety Report 11690965 (Version 1)
Quarter: 2015Q4

REPORT INFORMATION
  Report Type: Spontaneous
  Country: JP (occurrence: JP)
  Receive Date: 20151102
  Receipt Date: 20151102
  Transmission Date: 20160304
  Serious: Yes (Hospitalization)
  Sender: FDA-Public Use
  Company Number: JP-AKORN PHARMACEUTICALS-2015AKN00630

PATIENT
  Age: 74 Year
  Sex: Male

DRUGS (24)
  1. ATORVASTATIN [Concomitant]
     Active Substance: ATORVASTATIN
     Dosage: UNK TABLETS, UNK
  2. MUCOSTA [Concomitant]
     Active Substance: REBAMIPIDE
     Dosage: UNK TABLETS, UNK
     Dates: end: 20140730
  3. KARY UNI [Concomitant]
     Active Substance: PIRENOXINE
     Dosage: UNK
     Route: 047
  4. MOSAPRIDE CITRATE [Concomitant]
     Active Substance: MOSAPRIDE CITRATE
     Dosage: UNK TABLETS, UNK
     Dates: start: 20140618, end: 20140730
  5. TRINOSIN [Concomitant]
     Active Substance: ADENOSINE TRIPHOSPHATE DISODIUM
     Dosage: UNK, GRANULES
     Dates: start: 20140618, end: 20140730
  6. URIEF [Concomitant]
     Active Substance: SILODOSIN
     Dosage: UNK TABLETS, UNK
     Dates: start: 20140618
  7. SODIUM CHLORIDE. [Concomitant]
     Active Substance: SODIUM CHLORIDE
     Dosage: UNK, POWDER
     Dates: start: 20141218
  8. NEXIUM [Concomitant]
     Active Substance: ESOMEPRAZOLE MAGNESIUM
     Dosage: UNK CAPSULES, UNK
     Dates: end: 20140618
  9. AMLODIPINE BESYLATE. [Concomitant]
     Active Substance: AMLODIPINE BESYLATE
     Dosage: UNK TABLETS, UNK
     Dates: start: 20140618, end: 20140730
  10. ZIOPTAN [Suspect]
     Active Substance: TAFLUPROST
     Indication: GLAUCOMA
     Dosage: 2 GTT, BID
     Route: 047
     Dates: start: 20140106, end: 20150909
  11. AVOLVE [Concomitant]
     Active Substance: DUTASTERIDE
     Dosage: UNK CAPSULES, UNK
  12. EXFORGE [Concomitant]
     Active Substance: AMLODIPINE BESYLATE\VALSARTAN
     Dosage: UNK TABLETS, UNK
  13. INTEBAN [Concomitant]
     Active Substance: INDOMETHACIN
  14. LANSOPRAZOLE OD [Concomitant]
     Active Substance: LANSOPRAZOLE
     Dosage: UNK TABLETS, UNK
     Dates: start: 20140618, end: 20140730
  15. HYALEIN [Concomitant]
     Active Substance: HYALURONATE SODIUM
     Dosage: UNK
     Route: 047
  16. BAYASPIRIN [Concomitant]
     Active Substance: ASPIRIN
     Dosage: UNK TABLETS, UNK
  17. GASMOTIN [Concomitant]
     Active Substance: MOSAPRIDE CITRATE
     Dosage: UNK TABLETS, UNK
     Dates: end: 20140618
  18. ADETPHOS [Concomitant]
     Active Substance: ADENOSINE TRIPHOSPHATE
     Dosage: UNK, GRANULES
     Dates: end: 20140618
  19. ZOLPIDEM TARTRATE. [Concomitant]
     Active Substance: ZOLPIDEM TARTRATE
     Dosage: UNK TABLETS, UNK
     Dates: start: 20140618
  20. KM POWDER [Concomitant]
     Dosage: POWDER
  21. BIO-THREE [Concomitant]
     Active Substance: HERBALS
     Dosage: UNK TABLETS, UNK
     Dates: start: 20150427
  22. MAGLAX [Concomitant]
     Active Substance: MAGNESIUM OXIDE
     Dosage: UNK TABLETS, UNK
     Dates: start: 20150427
  23. DIOVAN [Concomitant]
     Active Substance: VALSARTAN
     Dosage: UNK TABLETS, UNK
     Dates: start: 20140618, end: 20140730
  24. MYSLEE [Concomitant]
     Active Substance: ZOLPIDEM TARTRATE
     Dosage: UNK TABLETS, UNK
     Dates: start: 20140730

REACTIONS (1)
  - Gastric cancer [Unknown]

NARRATIVE: CASE EVENT DATE: 20140426
